FAERS Safety Report 17214398 (Version 1)
Quarter: 2019Q4

REPORT INFORMATION
  Report Type: Spontaneous
  Country: US (occurrence: US)
  Receive Date: 20191230
  Receipt Date: 20191230
  Transmission Date: 20200122
  Serious: No
  Sender: FDA-Public Use
  Company Number: US-CELGENEUS-USA-20191209769

PATIENT
  Sex: Male
  Weight: 84.44 kg

DRUGS (2)
  1. REVLIMID [Suspect]
     Active Substance: LENALIDOMIDE
     Indication: ANAEMIA
     Dosage: 25 MILLIGRAM
     Route: 048
     Dates: start: 20191030
  2. REVLIMID [Suspect]
     Active Substance: LENALIDOMIDE
     Indication: OFF LABEL USE

REACTIONS (1)
  - Joint swelling [Recovering/Resolving]

NARRATIVE: CASE EVENT DATE: 2019
